FAERS Safety Report 9733446 (Version 1)
Quarter: 2013Q4

REPORT INFORMATION
  Report Type: Spontaneous
  Country: US (occurrence: US)
  Receive Date: 20131205
  Receipt Date: 20131205
  Transmission Date: 20140711
  Serious: Yes (Other)
  Sender: FDA-Public Use
  Company Number: US-TEVA-448468USA

PATIENT
  Age: 26 Year
  Sex: Female
  Weight: 81.27 kg

DRUGS (6)
  1. PARAGARD 380A [Suspect]
     Indication: CONTRACEPTION
     Route: 015
     Dates: start: 20131031, end: 20131202
  2. FLOVENT [Concomitant]
     Indication: ASTHMA
  3. TOPAMAX [Concomitant]
  4. WELLBUTRIN [Concomitant]
  5. METMORFIN [Concomitant]
     Indication: POLYCYSTIC OVARIES
  6. KEFLEX [Concomitant]

REACTIONS (2)
  - Device dislocation [Recovered/Resolved]
  - Urinary tract infection [Not Recovered/Not Resolved]
